FAERS Safety Report 10233654 (Version 1)
Quarter: 2014Q2

REPORT INFORMATION
  Report Type: Spontaneous
  Country: US (occurrence: US)
  Receive Date: 20140612
  Receipt Date: 20140612
  Transmission Date: 20141212
  Serious: Yes (Hospitalization)
  Sender: FDA-Public Use
  Company Number: US-ACTAVIS-2014-13016

PATIENT
  Age: 38 Year
  Sex: Female

DRUGS (1)
  1. DOXYCYCLINE (WATSON LABORATORIES) [Suspect]
     Indication: TOOTH ABSCESS
     Dosage: UNKNOWN
     Route: 065

REACTIONS (4)
  - Dyspnoea [Recovered/Resolved]
  - Swelling face [Recovered/Resolved]
  - Lip swelling [Recovered/Resolved]
  - Urticaria [Recovered/Resolved]
